FAERS Safety Report 18427315 (Version 2)
Quarter: 2020Q4

REPORT INFORMATION
  Report Type: Spontaneous
  Country: US (occurrence: US)
  Receive Date: 20201026
  Receipt Date: 20201127
  Transmission Date: 20210114
  Serious: No
  Sender: FDA-Public Use
  Company Number: US-ASTRAZENECA-2020SF31006

PATIENT
  Age: 63 Year
  Sex: Female
  Weight: 70.8 kg

DRUGS (11)
  1. CEFUROXIME. [Concomitant]
     Active Substance: CEFUROXIME
  2. TRELEGY ELLIPTA [Concomitant]
     Active Substance: FLUTICASONE FUROATE\UMECLIDINIUM BROMIDE\VILANTEROL TRIFENATATE
  3. PREDNISONE. [Concomitant]
     Active Substance: PREDNISONE
  4. FASENRA [Suspect]
     Active Substance: BENRALIZUMAB
     Indication: ASTHMA
     Route: 058
     Dates: start: 20200109, end: 20200915
  5. FLONASE [Concomitant]
     Active Substance: FLUTICASONE PROPIONATE
  6. ALBUTEROL. [Concomitant]
     Active Substance: ALBUTEROL
  7. VENLAFAXINE [Concomitant]
     Active Substance: VENLAFAXINE HYDROCHLORIDE
  8. SINGULAIR [Concomitant]
     Active Substance: MONTELUKAST SODIUM
  9. LEVOFLOXACIN. [Concomitant]
     Active Substance: LEVOFLOXACIN
  10. OMEPRAZOLE. [Concomitant]
     Active Substance: OMEPRAZOLE
  11. ESCITALOPRAM [Concomitant]
     Active Substance: ESCITALOPRAM OXALATE

REACTIONS (1)
  - Dysgeusia [Recovered/Resolved]

NARRATIVE: CASE EVENT DATE: 20200702
